FAERS Safety Report 7057861-X (Version None)
Quarter: 2010Q4

REPORT INFORMATION
  Report Type: 
  Country: None (occurrence: None)
  Receive Date: 20101022
  Receipt Date: 20101020
  Transmission Date: 20110411
  Serious: Yes (Other)
  Sender: FDA-Public Use
  Company Number: NL-PFIZER INC-2010133766

PATIENT
  Age: 42 Year
  Sex: Male

DRUGS (8)
  1. LINEZOLID [Suspect]
     Indication: PULMONARY TUBERCULOSIS
     Dosage: 300 MG, 2X/DAY
  2. LINEZOLID [Interacting]
     Dosage: 150 MG, 2X/DAY
  3. CLARITHROMYCIN [Interacting]
     Indication: PULMONARY TUBERCULOSIS
     Dosage: 1000 MG, 1X/DAY
  4. CLOFAZIMINE [Concomitant]
     Indication: PULMONARY TUBERCULOSIS
  5. DOMPERIDONE [Concomitant]
  6. INSULIN [Concomitant]
  7. OMEPRAZOLE [Concomitant]
  8. VITAMINS [Concomitant]

REACTIONS (2)
  - DRUG INTERACTION [None]
  - DRUG LEVEL INCREASED [None]
